FAERS Safety Report 6431113-0 (Version None)
Quarter: 2009Q4

REPORT INFORMATION
  Report Type: 
  Country: None (occurrence: None)
  Receive Date: 20091106
  Receipt Date: 20091031
  Transmission Date: 20100525
  Serious: Yes (Death)
  Sender: FDA-Public Use
  Company Number: PT-CELGENEUS-130-50794-09110084

PATIENT

DRUGS (5)
  1. VIDAZA [Suspect]
     Route: 048
  2. VIDAZA [Suspect]
     Indication: REFRACTORY ANAEMIA
  3. VIDAZA [Suspect]
  4. VIDAZA [Suspect]
  5. VIDAZA [Suspect]

REACTIONS (3)
  - DISEASE PROGRESSION [None]
  - INFECTION [None]
  - NO THERAPEUTIC RESPONSE [None]
